FAERS Safety Report 7351353-6 (Version None)
Quarter: 2011Q1

REPORT INFORMATION
  Report Type: 
  Country: None (occurrence: None)
  Receive Date: 20110314
  Receipt Date: 20110301
  Transmission Date: 20110831
  Serious: Yes (Other)
  Sender: FDA-Public Use
  Company Number: PHFR2011GB00574

PATIENT
  Sex: Male

DRUGS (8)
  1. LANSOPRAZOLE [Concomitant]
     Dosage: 30 MG, QD
     Route: 048
  2. GAVISCON [Concomitant]
     Dosage: 5 ML, QD
     Route: 048
  3. ESCITALOPRAM [Concomitant]
     Dosage: 10 MG, QD
     Route: 048
  4. TIOTROPIUM [Concomitant]
     Dosage: 18 UG, QD
  5. DOCUSATE SODIUM [Concomitant]
     Dosage: 200 MG, BID
     Route: 048
  6. SERETIDE EVOHALER [Concomitant]
     Dosage: 1 PUFF BD
  7. CLOZARIL [Suspect]
     Dosage: 300 MG, BID
     Route: 048
  8. CLOZARIL [Suspect]
     Indication: SCHIZOPHRENIA
     Dosage: UNK
     Route: 048
     Dates: start: 20010323

REACTIONS (8)
  - LEFT VENTRICULAR FAILURE [None]
  - HAEMATOCRIT DECREASED [None]
  - LYMPHOCYTE COUNT INCREASED [None]
  - HAEMOGLOBIN DECREASED [None]
  - EOSINOPHIL COUNT INCREASED [None]
  - DIFFERENTIAL WHITE BLOOD CELL COUNT ABNORMAL [None]
  - FRACTURE [None]
  - MEAN CELL HAEMOGLOBIN DECREASED [None]
